FAERS Safety Report 8259767-7 (Version None)
Quarter: 2012Q2

REPORT INFORMATION
  Report Type: 
  Country: None (occurrence: None)
  Receive Date: 20120404
  Receipt Date: 20120326
  Transmission Date: 20120825
  Serious: No
  Sender: FDA-Public Use
  Company Number: US-B.I. PHARMACEUTICALS,INC./RIDGEFIELD-2012-BP-05650BP

PATIENT
  Sex: Male

DRUGS (11)
  1. PRADAXA [Suspect]
     Indication: ATRIAL FIBRILLATION
     Dosage: 150 MG
     Route: 048
     Dates: start: 20120322
  2. RANEXA [Concomitant]
     Indication: CARDIAC FAILURE CONGESTIVE
     Dosage: 1000 MG
     Route: 048
  3. VITAMIN D [Concomitant]
     Indication: VITAMIN SUPPLEMENTATION
     Route: 048
  4. COLACE [Concomitant]
     Indication: CONSTIPATION
     Dosage: 200 MG
     Route: 048
  5. DIFLUCAN [Concomitant]
     Indication: FUNGAL INFECTION
     Dosage: 200 MG
     Route: 048
     Dates: start: 20100601
  6. SOTALOL HCL [Concomitant]
     Indication: ATRIAL FIBRILLATION
     Dosage: 160 MG
     Route: 048
  7. ASPIRIN [Concomitant]
     Indication: ATRIAL FIBRILLATION
     Dosage: 81 MG
     Route: 048
  8. FISH OIL [Concomitant]
     Indication: CARDIAC FAILURE CONGESTIVE
     Route: 048
  9. COREG [Concomitant]
     Indication: CARDIAC FAILURE CONGESTIVE
     Dosage: 6.25 MG
     Route: 048
  10. DOXYCYCLINE [Concomitant]
     Indication: VIITH NERVE PARALYSIS
  11. RANITIDINE [Concomitant]
     Indication: DYSPEPSIA
     Dosage: 150 MG
     Route: 048

REACTIONS (1)
  - HEADACHE [None]
